FAERS Safety Report 11555020 (Version 1)
Quarter: 2015Q3

REPORT INFORMATION
  Report Type: Spontaneous
  Country: US (occurrence: US)
  Receive Date: 20150903
  Receipt Date: 20150903
  Transmission Date: 20151125
  Serious: No
  Sender: FDA-Public Use
  Company Number: US-ELI_LILLY_AND_COMPANY-US201009007643

PATIENT
  Sex: Female

DRUGS (2)
  1. HUMALOG [Suspect]
     Active Substance: INSULIN LISPRO
     Dosage: 80 U, AS NEEDED
  2. HUMALOG [Suspect]
     Active Substance: INSULIN LISPRO
     Indication: DIABETES MELLITUS
     Dosage: 80 U, AS NEEDED

REACTIONS (5)
  - Pollakiuria [Unknown]
  - Blood glucose increased [Unknown]
  - Sleep disorder [Unknown]
  - Drug dose omission [Unknown]
  - Thirst [Unknown]
